FAERS Safety Report 9591872 (Version 2)
Quarter: 2013Q4

REPORT INFORMATION
  Report Type: Spontaneous
  Country: US (occurrence: US)
  Receive Date: 20131004
  Receipt Date: 20131004
  Transmission Date: 20140711
  Serious: No
  Sender: FDA-Public Use
  Company Number: US-AMGEN-USASP2013059277

PATIENT
  Age: 56 Year
  Sex: Female
  Weight: 90.7 kg

DRUGS (8)
  1. ENBREL [Suspect]
     Indication: PRODUCT USED FOR UNKNOWN INDICATION
     Dosage: 50 MG, QWK
     Route: 058
     Dates: start: 20130515
  2. METOTREXATE [Suspect]
     Indication: PRODUCT USED FOR UNKNOWN INDICATION
     Dosage: UNK
     Route: 065
  3. HYDROXYCHLOROQUINE [Concomitant]
     Dosage: 200 MG, UNK
  4. CRESTOR [Concomitant]
     Dosage: 10 MG, UNK
  5. ALEVE [Concomitant]
     Dosage: 220 MG, UNK
  6. ASA [Concomitant]
     Dosage: 81 MG, UNK
  7. CELEXA                             /00582602/ [Concomitant]
     Dosage: 10 MG, UNK
  8. PREDNISONE [Concomitant]
     Dosage: UNK

REACTIONS (5)
  - Therapeutic response decreased [Unknown]
  - Pain [Unknown]
  - Joint stiffness [Unknown]
  - Hepatic enzyme abnormal [Unknown]
  - Injection site rash [Unknown]
